FAERS Safety Report 7214087-4 (Version None)
Quarter: 2010Q4

REPORT INFORMATION
  Report Type: 
  Country: None (occurrence: None)
  Receive Date: 20101227
  Receipt Date: 20101213
  Transmission Date: 20110411
  Serious: Yes (Other)
  Sender: FDA-Public Use
  Company Number: DSJ-2010-21824

PATIENT
  Sex: Female

DRUGS (3)
  1. OFLOCET OTIC SOLUTION (OFLOXACIN) (EAR DROPS) (OFLOXACIN) [Suspect]
     Indication: EAR INFECTION
     Dosage: AURICULAR (OTIC)
     Route: 001
     Dates: start: 20100501
  2. PREDNISONE TAB [Concomitant]
  3. OFLOXACIN [Concomitant]

REACTIONS (2)
  - ARTHRALGIA [None]
  - TENOSYNOVITIS [None]
